FAERS Safety Report 15523472 (Version 1)
Quarter: 2018Q4

REPORT INFORMATION
  Report Type: Spontaneous
  Country: US (occurrence: US)
  Receive Date: 20181018
  Receipt Date: 20181018
  Transmission Date: 20190205
  Serious: No
  Sender: FDA-Public Use
  Company Number: US-TEVA-819731ACC

PATIENT
  Sex: Female

DRUGS (1)
  1. AMIKACIN. [Suspect]
     Active Substance: AMIKACIN
     Route: 065

REACTIONS (2)
  - Hypoacusis [Unknown]
  - Pruritus [Unknown]
